FAERS Safety Report 10229700 (Version 1)
Quarter: 2014Q2

REPORT INFORMATION
  Report Type: Report from Study
  Country: US (occurrence: US)
  Receive Date: 20140611
  Receipt Date: 20140611
  Transmission Date: 20141212
  Serious: Yes (Other)
  Sender: FDA-Public Use
  Company Number: PHEH2014US011500

PATIENT
  Sex: Female

DRUGS (1)
  1. GILENYA [Suspect]
     Indication: MULTIPLE SCLEROSIS
     Route: 064

REACTIONS (4)
  - Premature baby [Unknown]
  - Foetal growth restriction [Unknown]
  - Heart rate decreased [Unknown]
  - Exposure during pregnancy [Unknown]
